FAERS Safety Report 14640823 (Version 1)
Quarter: 2018Q1

REPORT INFORMATION
  Report Type: Spontaneous
  Country: US (occurrence: US)
  Receive Date: 20180315
  Receipt Date: 20180315
  Transmission Date: 20180509
  Serious: Yes (Other)
  Sender: FDA-Public Use
  Company Number: US-UNICHEM PHARMACEUTICALS (USA) INC-UCM201803-000064

PATIENT
  Sex: Male
  Weight: 79.37 kg

DRUGS (8)
  1. CLONIDINE HCL 0.1 MG TABLET [Suspect]
     Active Substance: CLONIDINE HYDROCHLORIDE
     Indication: HYPERTENSION
  2. LOVASTATIN. [Concomitant]
     Active Substance: LOVASTATIN
  3. AMLODIPINE [Concomitant]
     Active Substance: AMLODIPINE BESYLATE
  4. LASIX [Concomitant]
     Active Substance: FUROSEMIDE
     Indication: PARKINSON^S DISEASE
  5. AZULIX [Concomitant]
     Indication: PARKINSON^S DISEASE
  6. INSULIN [Concomitant]
     Active Substance: INSULIN NOS
  7. DIOVAN [Concomitant]
     Active Substance: VALSARTAN
  8. RYTARY [Concomitant]
     Active Substance: CARBIDOPA\LEVODOPA
     Indication: PARKINSON^S DISEASE

REACTIONS (5)
  - Immobile [Recovered/Resolved]
  - Muscle rigidity [Recovered/Resolved]
  - Condition aggravated [Recovered/Resolved]
  - Balance disorder [Recovered/Resolved]
  - Drug interaction [Recovered/Resolved]
